FAERS Safety Report 8097328-3 (Version None)
Quarter: 2012Q1

REPORT INFORMATION
  Report Type: 
  Country: None (occurrence: None)
  Receive Date: 20120128
  Receipt Date: 20110708
  Transmission Date: 20120608
  Serious: No
  Sender: FDA-Public Use
  Company Number: US-ABBOTT-11P-163-0838006-00

PATIENT
  Sex: Female
  Weight: 72.64 kg

DRUGS (2)
  1. METHOTREXATE [Concomitant]
     Indication: RHEUMATOID ARTHRITIS
     Dosage: UNREPORTED DOSE - ONCE A WEEK
     Route: 048
  2. HUMIRA [Suspect]
     Indication: RHEUMATOID ARTHRITIS
     Route: 058
     Dates: start: 20110301, end: 20110601

REACTIONS (4)
  - DRUG INEFFECTIVE [None]
  - MENOPAUSAL DISORDER [None]
  - PAIN [None]
  - ARTHRALGIA [None]
